FAERS Safety Report 5799387-7 (Version None)
Quarter: 2008Q3

REPORT INFORMATION
  Report Type: 
  Country: None (occurrence: None)
  Receive Date: 20080703
  Receipt Date: 20080624
  Transmission Date: 20090109
  Serious: Yes (Other)
  Sender: FDA-Public Use
  Company Number: US-PFIZER INC-2008053981

PATIENT
  Sex: Male
  Weight: 70 kg

DRUGS (6)
  1. CHANTIX [Suspect]
     Indication: SMOKING CESSATION THERAPY
     Dates: start: 20070101, end: 20080601
  2. LUNESTA [Concomitant]
  3. CYMBALTA [Concomitant]
  4. TRAZODONE HCL [Concomitant]
  5. HYDROMORPHONE HCL [Concomitant]
  6. VICODIN [Concomitant]

REACTIONS (1)
  - PHYSICAL ASSAULT [None]
